FAERS Safety Report 15277326 (Version 2)
Quarter: 2018Q3

REPORT INFORMATION
  Report Type: Spontaneous
  Country: AT (occurrence: AT)
  Receive Date: 20180814
  Receipt Date: 20180827
  Transmission Date: 20181010
  Serious: No
  Sender: FDA-Public Use
  Company Number: AT-OTSUKA-2018_010798

PATIENT
  Age: 18 Year
  Sex: Male
  Weight: 68 kg

DRUGS (1)
  1. ABILIFY [Suspect]
     Active Substance: ARIPIPRAZOLE
     Indication: OBSESSIVE THOUGHTS
     Dosage: 10 MG, SINGLE
     Route: 065
     Dates: end: 20180417

REACTIONS (12)
  - Pallor [Recovered/Resolved]
  - Dizziness [Recovered/Resolved]
  - Fatigue [Recovered/Resolved]
  - Hiccups [Recovered/Resolved]
  - Product use in unapproved indication [Unknown]
  - Dysphagia [Recovered/Resolved]
  - Loss of personal independence in daily activities [Unknown]
  - Nausea [Recovered/Resolved]
  - Eyelid disorder [Recovered/Resolved]
  - Feeling cold [Recovered/Resolved]
  - Malaise [Recovered/Resolved]
  - Dyspepsia [Recovered/Resolved]

NARRATIVE: CASE EVENT DATE: 201804
